FAERS Safety Report 26175517 (Version 1)
Quarter: 2025Q4

REPORT INFORMATION
  Report Type: Spontaneous
  Country: US (occurrence: US)
  Receive Date: 20251218
  Receipt Date: 20251218
  Transmission Date: 20260118
  Serious: No
  Sender: ELI LILLY AND COMPANY
  Company Number: US-ELI_LILLY_AND_COMPANY-US202512015704

PATIENT
  Age: 69 Year
  Sex: Female

DRUGS (1)
  1. VERZENIO [Suspect]
     Active Substance: ABEMACICLIB
     Indication: Skin cancer
     Dosage: 100 MG, BID
     Route: 048

REACTIONS (3)
  - Nausea [Unknown]
  - Diarrhoea [Unknown]
  - Off label use [Unknown]
